FAERS Safety Report 13411769 (Version 3)
Quarter: 2019Q4

REPORT INFORMATION
  Report Type: Spontaneous
  Country: US (occurrence: US)
  Receive Date: 20170406
  Receipt Date: 20191017
  Transmission Date: 20200122
  Serious: No
  Sender: FDA-Public Use
  Company Number: US-JNJFOC-20170303983

PATIENT
  Sex: Male

DRUGS (4)
  1. RISPERDAL M-TAB [Suspect]
     Active Substance: RISPERIDONE
     Route: 048
     Dates: start: 20090526
  2. RISPERDAL M-TAB [Suspect]
     Active Substance: RISPERIDONE
     Route: 048
     Dates: start: 20090216
  3. RISPERDAL [Suspect]
     Active Substance: RISPERIDONE
     Indication: PRODUCT USED FOR UNKNOWN INDICATION
     Route: 048
     Dates: start: 20090113, end: 20090526
  4. RISPERDAL M-TAB [Suspect]
     Active Substance: RISPERIDONE
     Indication: PRODUCT USED FOR UNKNOWN INDICATION
     Route: 048
     Dates: start: 20090113

REACTIONS (2)
  - Gynaecomastia [Unknown]
  - Emotional distress [Unknown]
